FAERS Safety Report 6721919-2 (Version None)
Quarter: 2010Q2

REPORT INFORMATION
  Report Type: 
  Country: None (occurrence: None)
  Receive Date: 20100512
  Receipt Date: 20100503
  Transmission Date: 20101027
  Serious: Yes (Hospitalization)
  Sender: FDA-Public Use
  Company Number: A0785433A

PATIENT
  Age: 37 Year
  Sex: Female
  Weight: 118.2 kg

DRUGS (2)
  1. AVANDIA [Suspect]
     Dosage: 4MG TWICE PER DAY
     Route: 048
     Dates: start: 20030101, end: 20061229
  2. BENAZAPRIL [Concomitant]

REACTIONS (3)
  - MYOCARDIAL INFARCTION [None]
  - TRANSIENT ISCHAEMIC ATTACK [None]
  - UPPER LIMB FRACTURE [None]
